FAERS Safety Report 9827601 (Version 1)
Quarter: 2013Q4

REPORT INFORMATION
  Report Type: Spontaneous
  Country: US (occurrence: None)
  Receive Date: 20131120
  Receipt Date: 20131120
  Transmission Date: 20140711
  Serious: Yes (Other)
  Sender: FDA-Public Use
  Company Number: 1000050345

PATIENT
  Age: 10 Year
  Sex: Male

DRUGS (5)
  1. VIIBRYD [Suspect]
     Indication: DEPRESSION
     Dosage: 5 MG (5 MG, 1 IN 1 D), ORAL
     Route: 048
     Dates: start: 20131001
  2. LATUDA (LURASIDONE HYDROCHLORIDE) (LURASIDONE HYDROCHLORIDE) [Concomitant]
  3. LAMOTRIGINE (LAMOTRIGINE) (LAMOTRIGINE) [Concomitant]
  4. LORATADINE (LORATADINE) (LORATADINE) [Concomitant]
  5. QVAR (BELCOMETASONE DIPROPIONATE) (BECLOMETASONE DIPROPIONATE) [Concomitant]

REACTIONS (1)
  - Off label use [None]
